FAERS Safety Report 21521215 (Version 1)
Quarter: 2022Q4

REPORT INFORMATION
  Report Type: Spontaneous
  Country: JP (occurrence: JP)
  Receive Date: 20221028
  Receipt Date: 20221028
  Transmission Date: 20230113
  Serious: Yes (Other)
  Sender: FDA-Public Use
  Company Number: JP-BAYER-2022A148203

PATIENT
  Age: 80 Year
  Sex: Male

DRUGS (1)
  1. VERICIGUAT HYDROCHLORIDE [Suspect]
     Active Substance: VERICIGUAT HYDROCHLORIDE
     Indication: Cardiac failure chronic
     Dosage: 2.5 MILLIGRAM
     Dates: start: 202208, end: 202210

REACTIONS (1)
  - Low cardiac output syndrome [Unknown]

NARRATIVE: CASE EVENT DATE: 20220101
